FAERS Safety Report 6633868-9 (Version None)
Quarter: 2010Q1

REPORT INFORMATION
  Report Type: 
  Country: None (occurrence: None)
  Receive Date: 20100315
  Receipt Date: 20100301
  Transmission Date: 20100710
  Serious: Yes (Other)
  Sender: FDA-Public Use
  Company Number: TR-ELI_LILLY_AND_COMPANY-TR201003000916

PATIENT
  Age: 38 Year
  Sex: Female

DRUGS (2)
  1. HUMULIN N [Suspect]
     Indication: GESTATIONAL DIABETES
     Dosage: 5 U, EACH MORNING
     Route: 058
  2. ELEVIT [Concomitant]
     Dosage: UNK UNK, DAILY (1/D)
     Route: 048

REACTIONS (2)
  - ABORTION [None]
  - DRUG EXPOSURE DURING PREGNANCY [None]
